FAERS Safety Report 5212781-8 (Version None)
Quarter: 2007Q1

REPORT INFORMATION
  Report Type: 
  Country: None (occurrence: None)
  Receive Date: 20070118
  Receipt Date: 20070118
  Transmission Date: 20070707
  Serious: Yes (Other)
  Sender: FDA-Public Use
  Company Number: None

PATIENT
  Age: 68 Year
  Sex: Male

DRUGS (11)
  1. REVLIMID [Suspect]
     Indication: MYELODYSPLASTIC SYNDROME
     Dosage: 10MG DAILY 21D/28D PO
     Route: 048
  2. LORAZEPAM [Concomitant]
  3. TERAZOSIN HCL [Concomitant]
  4. MAXITROL [Concomitant]
  5. PROCRIT [Concomitant]
  6. COLCHICINE [Concomitant]
  7. ALLOPURINOL SODIUM [Concomitant]
  8. OMEPRAZOLE [Concomitant]
  9. VICODIN [Concomitant]
  10. AMOXICILLIN [Concomitant]
  11. NYSTATIN [Concomitant]

REACTIONS (1)
  - THROMBOCYTOPENIA [None]
